FAERS Safety Report 14343845 (Version 1)
Quarter: 2018Q1

REPORT INFORMATION
  Report Type: Spontaneous
  Country: US (occurrence: US)
  Receive Date: 20180102
  Receipt Date: 20180102
  Transmission Date: 20180509
  Serious: Yes (Hospitalization, Other)
  Sender: FDA-Public Use
  Company Number: US-PFIZER INC-2017556245

PATIENT
  Age: 71 Year
  Sex: Female
  Weight: 89 kg

DRUGS (2)
  1. RAPAMUNE [Suspect]
     Active Substance: SIROLIMUS
     Indication: PROPHYLAXIS AGAINST TRANSPLANT REJECTION
     Dosage: 1 MG, ONCE DAILY
     Route: 048
     Dates: start: 2015
  2. REFRESH OPTIVE [Concomitant]
     Active Substance: CARBOXYMETHYLCELLULOSE SODIUM\GLYCERIN
     Indication: DRY EYE
     Dosage: 1 GTT, UNK (1 DROP EVERY HOUR WHILE AWAY)
     Dates: start: 20171205

REACTIONS (5)
  - Eye infection [Unknown]
  - Heart rate irregular [Recovering/Resolving]
  - Asthenia [Unknown]
  - Dizziness [Unknown]
  - Cataract [Unknown]

NARRATIVE: CASE EVENT DATE: 201712
